FAERS Safety Report 5403252-4 (Version None)
Quarter: 2007Q3

REPORT INFORMATION
  Report Type: 
  Country: None (occurrence: None)
  Receive Date: 20070713
  Receipt Date: 20070501
  Transmission Date: 20080115
  Serious: Yes (Hospitalization)
  Sender: FDA-Public Use
  Company Number: US-JNJFOC-20061200606

PATIENT
  Age: 44 Year
  Sex: Female
  Weight: 84 kg

DRUGS (6)
  1. ORTHO EVRA [Suspect]
     Indication: UTERINE NEOPLASM
     Dosage: TRANSDERMAL
     Route: 062
     Dates: start: 20040801, end: 20041110
  2. SKELAXIN [Concomitant]
  3. PRILOSEC [Concomitant]
  4. MOTRIN [Concomitant]
  5. ALBUTEROL INHALER (SALBUTAMOL) [Concomitant]
  6. ADVAIR DISKUS 100/50 [Concomitant]

REACTIONS (2)
  - OFF LABEL USE [None]
  - PULMONARY EMBOLISM [None]
